FAERS Safety Report 9450402 (Version 2)
Quarter: 2014Q1

REPORT INFORMATION
  Report Type: Spontaneous
  Country: US (occurrence: US)
  Receive Date: 20130809
  Receipt Date: 20140128
  Transmission Date: 20141002
  Serious: Yes (Death, Hospitalization)
  Sender: FDA-Public Use
  Company Number: US-B.I. PHARMACEUTICALS,INC./RIDGEFIELD-2013-BI-24033BP

PATIENT
  Sex: Male
  Weight: 104.33 kg

DRUGS (10)
  1. PRADAXA [Suspect]
     Indication: ATRIAL FIBRILLATION
     Dosage: 300 MG
     Dates: start: 20110126, end: 20110810
  2. JANUMET [Concomitant]
  3. BISOPROLOL [Concomitant]
  4. DIGOXIN [Concomitant]
  5. LASIX [Concomitant]
  6. LISINOPRIL [Concomitant]
     Dosage: 40 MG
  7. SIMVASTATIN [Concomitant]
     Dosage: 40 MG
  8. NEXIUM [Concomitant]
  9. COLACE [Concomitant]
  10. PAXIL [Concomitant]
     Dosage: 20 MG

REACTIONS (7)
  - Gastrointestinal haemorrhage [Fatal]
  - Septic shock [Recovered/Resolved]
  - Coagulopathy [Unknown]
  - Renal failure acute [Unknown]
  - Acute respiratory failure [Unknown]
  - Encephalopathy [Unknown]
  - Ecchymosis [Unknown]
